FAERS Safety Report 25663128 (Version 2)
Quarter: 2025Q3

REPORT INFORMATION
  Report Type: Spontaneous
  Country: EU (occurrence: EU)
  Receive Date: 20250811
  Receipt Date: 20250826
  Transmission Date: 20251020
  Serious: Yes (Death, Other)
  Sender: CELLTRION
  Company Number: EU-PFIZER INC-PV202500064628

PATIENT

DRUGS (11)
  1. TRASTUZUMAB [Suspect]
     Active Substance: TRASTUZUMAB
     Indication: Breast cancer metastatic
     Dates: start: 20230825
  2. TRASTUZUMAB [Suspect]
     Active Substance: TRASTUZUMAB
  3. TRASTUZUMAB [Suspect]
     Active Substance: TRASTUZUMAB
     Dates: start: 202412
  4. TUCATINIB [Suspect]
     Active Substance: TUCATINIB
     Indication: Breast cancer metastatic
     Dates: start: 20230825, end: 20230918
  5. TUCATINIB [Suspect]
     Active Substance: TUCATINIB
  6. DOCETAXEL [Suspect]
     Active Substance: DOCETAXEL
     Indication: Breast cancer metastatic
     Dates: start: 202412
  7. CAPECITABINE [Suspect]
     Active Substance: CAPECITABINE
     Indication: Breast cancer metastatic
     Dates: start: 20230829, end: 20230912
  8. CAPECITABINE [Suspect]
     Active Substance: CAPECITABINE
  9. TRASTUZUMAB DERUXTECAN [Suspect]
     Active Substance: TRASTUZUMAB DERUXTECAN
     Indication: Breast cancer metastatic
     Dates: start: 202403
  10. LAPATINIB [Suspect]
     Active Substance: LAPATINIB
     Indication: Breast cancer metastatic
  11. ESOMEPRAZOLE [Concomitant]
     Active Substance: ESOMEPRAZOLE

REACTIONS (8)
  - Breast cancer metastatic [Fatal]
  - Malignant neoplasm progression [Fatal]
  - Metastases to bone [Not Recovered/Not Resolved]
  - Hepatic function abnormal [Unknown]
  - Hypertransaminasaemia [Unknown]
  - Diarrhoea [Unknown]
  - Asthenia [Unknown]
  - Alopecia [Unknown]

NARRATIVE: CASE EVENT DATE: 20230901
